FAERS Safety Report 8157991-5 (Version None)
Quarter: 2012Q1

REPORT INFORMATION
  Report Type: 
  Country: None (occurrence: None)
  Receive Date: 20120222
  Receipt Date: 20120216
  Transmission Date: 20120608
  Serious: Yes (Hospitalization, Other)
  Sender: FDA-Public Use
  Company Number: PHHY2011JP109925

PATIENT
  Sex: Male
  Weight: 53 kg

DRUGS (9)
  1. TEGRETOL [Suspect]
     Dosage: 200 MG, DAILY
     Route: 048
     Dates: end: 20110726
  2. AMOBAN [Concomitant]
     Dosage: 7.5 MG, UNK
     Route: 048
  3. PLAVIX [Concomitant]
     Dosage: 75 MG, UNK
     Route: 048
     Dates: end: 20110726
  4. SENNOSIDE [Concomitant]
     Dosage: 1 DF, UNK
     Route: 048
  5. SYMMETREL [Suspect]
     Dosage: 200 MG, DAILY
     Route: 048
     Dates: end: 20110726
  6. LASIX [Concomitant]
     Indication: PROPHYLAXIS
     Dosage: 20 MG, UNK
     Route: 048
     Dates: start: 20100618, end: 20110726
  7. WARFARIN SODIUM [Concomitant]
     Indication: VENOUS THROMBOSIS LIMB
     Dosage: 5 MG, UNK
     Route: 048
     Dates: start: 20110311, end: 20110716
  8. CHOREI-TO [Concomitant]
     Dosage: 2 DF, UNK
     Route: 048
     Dates: start: 20100813, end: 20110726
  9. LANSOPRAZOLE [Concomitant]
     Dosage: 15 MG, UNK
     Route: 048

REACTIONS (18)
  - NECROSIS [None]
  - DEPRESSED LEVEL OF CONSCIOUSNESS [None]
  - MUSCULAR WEAKNESS [None]
  - DECUBITUS ULCER [None]
  - HYPOAESTHESIA [None]
  - MOVEMENT DISORDER [None]
  - HAEMOGLOBIN DECREASED [None]
  - DRUG INTERACTION [None]
  - BLOOD POTASSIUM DECREASED [None]
  - BLOOD ALBUMIN DECREASED [None]
  - OEDEMA PERIPHERAL [None]
  - HAEMATURIA [None]
  - HAEMATOCRIT DECREASED [None]
  - DRUG ADMINISTRATION ERROR [None]
  - GAMMA-GLUTAMYLTRANSFERASE INCREASED [None]
  - WHITE BLOOD CELL COUNT INCREASED [None]
  - PLATELET COUNT INCREASED [None]
  - BLOOD CHOLESTEROL DECREASED [None]
